FAERS Safety Report 15904256 (Version 2)
Quarter: 2019Q1

REPORT INFORMATION
  Report Type: Spontaneous
  Country: JP (occurrence: JP)
  Receive Date: 20190204
  Receipt Date: 20190206
  Transmission Date: 20190417
  Serious: Yes (Other)
  Sender: FDA-Public Use
  Company Number: JP-TEVA-2019-JP-000535J

PATIENT
  Age: 8 Decade
  Sex: Male

DRUGS (1)
  1. CONSTAN 0.4MG.TABLETS [Suspect]
     Active Substance: ALPRAZOLAM
     Indication: PRODUCT USED FOR UNKNOWN INDICATION
     Dosage: DOSAGE IS UNKNOWN
     Route: 048

REACTIONS (7)
  - Stress [Unknown]
  - Cardiac discomfort [Unknown]
  - Rash pustular [Unknown]
  - Therapeutic response changed [Unknown]
  - Therapy cessation [Unknown]
  - Dizziness [Unknown]
  - Retinitis [Unknown]
